FAERS Safety Report 6642341-3 (Version None)
Quarter: 2010Q1

REPORT INFORMATION
  Report Type: 
  Country: None (occurrence: None)
  Receive Date: 20100319
  Receipt Date: 20100316
  Transmission Date: 20100710
  Serious: Yes (Hospitalization)
  Sender: FDA-Public Use
  Company Number: US-PERRIGO-09US006029

PATIENT
  Sex: Female
  Weight: 27.211 kg

DRUGS (2)
  1. IBUPROFEN 100MG JR CHEWABLE 461 [Suspect]
     Indication: PYREXIA
     Dosage: 200 MG, TWO DOSES 4.5 HRS APART
     Route: 048
     Dates: start: 20091217, end: 20091217
  2. IBUPROFEN 100MG JR CHEWABLE 461 [Suspect]
     Dosage: 200 MG, SINGLE
     Route: 048
     Dates: start: 20091218, end: 20091218

REACTIONS (5)
  - BLINDNESS TRANSIENT [None]
  - HEADACHE [None]
  - INAPPROPRIATE SCHEDULE OF DRUG ADMINISTRATION [None]
  - VISION BLURRED [None]
  - VISUAL IMPAIRMENT [None]
